FAERS Safety Report 17239526 (Version 1)
Quarter: 2020Q1

REPORT INFORMATION
  Report Type: Spontaneous
  Country: US (occurrence: US)
  Receive Date: 20200106
  Receipt Date: 20200106
  Transmission Date: 20200409
  Serious: No
  Sender: FDA-Public Use
  Company Number: US-ROCHE-2393973

PATIENT
  Age: 77 Year
  Sex: Female

DRUGS (1)
  1. GAZYVA [Suspect]
     Active Substance: OBINUTUZUMAB
     Indication: MARGINAL ZONE LYMPHOMA
     Dosage: 100 MG ON DAY 1 FOLLOWED BY 900 MG ON DAY 2
     Route: 042

REACTIONS (4)
  - Chills [Recovered/Resolved]
  - Intentional product use issue [Unknown]
  - Chest pain [Recovering/Resolving]
  - Off label use [Unknown]
